FAERS Safety Report 25389622 (Version 2)
Quarter: 2025Q2

REPORT INFORMATION
  Report Type: Spontaneous
  Country: CN (occurrence: CN)
  Receive Date: 20250603
  Receipt Date: 20250610
  Transmission Date: 20250717
  Serious: Yes (Other)
  Sender: PFIZER
  Company Number: CN-MLMSERVICE-20250523-PI518373-00128-1

PATIENT
  Age: 60 Year
  Sex: Male

DRUGS (8)
  1. ADRIAMYCIN [Suspect]
     Active Substance: DOXORUBICIN HYDROCHLORIDE
     Indication: Follicular lymphoma stage IV
     Dosage: 50 MG/M2 ADRIAMYCIN ON DAY 2 FOR FOUR CYCLES
     Dates: start: 2019, end: 202001
  2. RITUXIMAB [Suspect]
     Active Substance: RITUXIMAB
     Indication: Follicular lymphoma stage IV
     Dosage: 375 MG/M2 RITUXIMAB ON DAY 1 FOR FOUR CYCLES WITH R-CHOP REGIMEN
     Dates: start: 2019
  3. RITUXIMAB [Suspect]
     Active Substance: RITUXIMAB
     Dosage: 375 MG/M2 RITUXIMAB ON DAY 1 FOR FOUR CYCLES WITH R-FC REGIMEN
     Dates: end: 202001
  4. CYCLOPHOSPHAMIDE [Suspect]
     Active Substance: CYCLOPHOSPHAMIDE
     Indication: Follicular lymphoma stage IV
     Dosage: 750 MG/M2 CYCLOPHOSPHAMIDE ON DAY 2 FOR FOUR CYCLES WITH R-CHOP REGIMEN
     Dates: start: 2019
  5. CYCLOPHOSPHAMIDE [Suspect]
     Active Substance: CYCLOPHOSPHAMIDE
     Dosage: 250 MG/M2 CYCLOPHOSPHAMIDE ON DAYS 2-4 FOR FOUR CYCLES WITH R-FC REGIMEN
     Dates: end: 202001
  6. PREDNISONE [Suspect]
     Active Substance: PREDNISONE
     Indication: Follicular lymphoma stage IV
     Dosage: 100 MG PREDNISONE ON DAYS 2-6 FOR FOUR CYCLES
     Dates: start: 2019, end: 202001
  7. VINCRISTINE [Suspect]
     Active Substance: VINCRISTINE
     Indication: Follicular lymphoma stage IV
     Dosage: 2 MG VINCRISTINE ON DAY 2 FOR FOUR CYCLES
     Dates: start: 2019, end: 202001
  8. FLUDARABINE [Suspect]
     Active Substance: FLUDARABINE PHOSPHATE
     Indication: Follicular lymphoma stage IV
     Dosage: 25 MG/M2 FLUDARABINE ON DAYS 2-4
     Dates: end: 202001

REACTIONS (3)
  - Second primary malignancy [Recovered/Resolved]
  - Angiocentric lymphoma [Recovered/Resolved]
  - Epstein-Barr virus associated lymphoma [Recovered/Resolved]

NARRATIVE: CASE EVENT DATE: 20200301
